FAERS Safety Report 4512652-6 (Version None)
Quarter: 2005Q1

REPORT INFORMATION
  Report Type: 
  Country: None (occurrence: None)
  Receive Date: 20041012
  Receipt Date: 20040615
  Transmission Date: 20050727
  Serious: Yes (Other)
  Sender: FDA-Public Use
  Company Number: A03200401915

PATIENT

DRUGS (2)
  1. ROXATRAL- ALFUZOSIN HYDROCHLORIDE - TABLET- 10 MG [Suspect]
     Dosage: ORAL
     Route: 048
  2. BUSPIRONE [Concomitant]

REACTIONS (1)
  - SYNCOPE [None]
